FAERS Safety Report 7606153-6 (Version None)
Quarter: 2011Q3

REPORT INFORMATION
  Report Type: 
  Country: None (occurrence: None)
  Receive Date: 20110712
  Receipt Date: 20110712
  Transmission Date: 20111222
  Serious: Yes (Death, Life-Threatening, Hospitalization, Disabling, Congenital Anomaly, Other)
  Sender: FDA-Public Use
  Company Number: None

PATIENT
  Age: 33 Year
  Sex: Female
  Weight: 86.1834 kg

DRUGS (1)
  1. LYRICA [Suspect]
     Indication: PAIN
     Dates: start: 20110704, end: 20110707

REACTIONS (6)
  - DISORIENTATION [None]
  - ANGER [None]
  - AGITATION [None]
  - MOOD ALTERED [None]
  - ROAD TRAFFIC ACCIDENT [None]
  - AGGRESSION [None]
